FAERS Safety Report 13006983 (Version 7)
Quarter: 2017Q3

REPORT INFORMATION
  Report Type: Spontaneous
  Country: KR (occurrence: KR)
  Receive Date: 20161207
  Receipt Date: 20170920
  Transmission Date: 20171127
  Serious: Yes (Hospitalization, Other)
  Sender: FDA-Public Use
  Company Number: KR-009507513-1612KOR002077

PATIENT
  Age: 66 Year
  Sex: Male

DRUGS (27)
  1. BARACLUDE [Concomitant]
     Active Substance: ENTECAVIR
     Indication: PROPHYLAXIS
     Dosage: 0.5 MG, QD
     Route: 048
  2. MOSAONE [Concomitant]
     Indication: PROPHYLAXIS
     Dosage: 2.5 MG, TID
     Route: 048
  3. RIVOTRIL [Concomitant]
     Active Substance: CLONAZEPAM
     Indication: CONVULSION PROPHYLAXIS
     Dosage: 0.5 MG, QD
     Route: 048
  4. MADOPAR [Concomitant]
     Active Substance: BENSERAZIDE HYDROCHLORIDE\LEVODOPA
     Indication: PARKINSON^S DISEASE
     Dosage: 125 MG, TID
     Route: 048
  5. HYDROXOCOBALAMIN [Concomitant]
     Active Substance: HYDROXOCOBALAMIN
     Indication: VITAMIN SUPPLEMENTATION
     Dosage: 5 MG, ONCE
     Route: 030
     Dates: start: 20160317, end: 20160317
  6. MACPERAN [Concomitant]
     Active Substance: METOCLOPRAMIDE HYDROCHLORIDE
     Indication: PROPHYLAXIS OF NAUSEA AND VOMITING
     Dosage: 20 MG, ONCE
     Route: 042
     Dates: start: 20160324, end: 20160324
  7. CETIZAL [Concomitant]
     Indication: PROPHYLAXIS
     Dosage: 5 MG, QD
     Route: 048
     Dates: start: 20160324, end: 20160404
  8. CISPLATIN. [Concomitant]
     Active Substance: CISPLATIN
     Indication: LUNG NEOPLASM MALIGNANT
     Dosage: 96 MG, ONCE; STRENGTH: 10MG/20ML; CYCLE 1
     Route: 042
     Dates: start: 20160324, end: 20160324
  9. TACROBELL [Concomitant]
     Active Substance: TACROLIMUS
     Indication: LIVER TRANSPLANT
     Dosage: 0.25 MG, BID
     Route: 048
     Dates: start: 20160310
  10. MADOPAR HBS [Concomitant]
     Active Substance: BENSERAZIDE HYDROCHLORIDE\LEVODOPA
     Indication: PARKINSON^S DISEASE
     Dosage: 1 CAPSULE, TID
     Route: 048
  11. PLAKON [Concomitant]
     Indication: PROPHYLAXIS OF NAUSEA AND VOMITING
     Dosage: 1.5 MG, ONCE; STRENGTH: 3MG/2ML
     Route: 042
     Dates: start: 20160324, end: 20160324
  12. LASIX [Concomitant]
     Active Substance: FUROSEMIDE
     Indication: PROPHYLAXIS
     Dosage: 20 MG, ONCE; STRENGTH: 20MG/20ML
     Route: 042
     Dates: start: 20160324, end: 20160324
  13. DEXAMETHASONE SODIUM PHOSPHATE. [Concomitant]
     Active Substance: DEXAMETHASONE SODIUM PHOSPHATE
     Indication: PROPHYLAXIS OF NAUSEA AND VOMITING
     Dosage: 5 MG, ONCE; STRENGTH: 5 MG/ML
     Route: 042
     Dates: start: 20160324, end: 20160324
  14. MAGNESIN (MAGNESIUM SULFATE) [Concomitant]
     Indication: PROPHYLAXIS
     Dosage: 1 G, BID
     Route: 042
     Dates: start: 20160324, end: 20160324
  15. ALOXI [Concomitant]
     Active Substance: PALONOSETRON HYDROCHLORIDE
     Indication: PROPHYLAXIS OF NAUSEA AND VOMITING
     Dosage: 0.25 MG, ONCE
     Route: 042
     Dates: start: 20160324, end: 20160324
  16. MACPERAN [Concomitant]
     Active Substance: METOCLOPRAMIDE HYDROCHLORIDE
     Indication: PROPHYLAXIS OF NAUSEA AND VOMITING
     Dosage: 5 MG, TID
     Route: 048
     Dates: start: 20160324, end: 20160328
  17. EMEND (FOSAPREPITANT DIMEGLUMINE) [Suspect]
     Active Substance: FOSAPREPITANT DIMEGLUMINE
     Indication: PROPHYLAXIS OF NAUSEA AND VOMITING
     Dosage: 150 MG, ONCE
     Route: 042
     Dates: start: 20160324, end: 20160324
  18. PEMETREXED DISODIUM [Concomitant]
     Active Substance: PEMETREXED DISODIUM
     Indication: LUNG NEOPLASM MALIGNANT
     Dosage: 650 MG, ONCE; CYCLE 1
     Route: 042
     Dates: start: 20160324, end: 20160324
  19. HEPATITIS B IMMUNE GLOBULIN [Concomitant]
     Active Substance: HUMAN HEPATITIS B VIRUS IMMUNE GLOBULIN
     Indication: IMMUNE ENHANCEMENT THERAPY
     Dosage: 5000 IU, QD
     Route: 042
  20. ISOPTIN SR [Concomitant]
     Active Substance: VERAPAMIL HYDROCHLORIDE
     Indication: ARRHYTHMIA PROPHYLAXIS
     Dosage: 180 MG, QD
     Route: 048
     Dates: start: 20160321
  21. DEXAMETHASONE. [Concomitant]
     Active Substance: DEXAMETHASONE
     Indication: PROPHYLAXIS OF NAUSEA AND VOMITING
     Dosage: 0.5 MG, QD
     Route: 048
     Dates: start: 20160325, end: 20160327
  22. AMANTADINE SULFATE [Concomitant]
     Active Substance: AMANTADINE SULFATE
     Indication: PARKINSON^S DISEASE
     Dosage: 50 MG, BID
     Route: 048
  23. CODEINE PHOSPHATE [Concomitant]
     Active Substance: CODEINE PHOSPHATE
     Indication: ANTITUSSIVE THERAPY
     Dosage: 20 MG, TID
     Route: 048
     Dates: start: 20160317
  24. FOLIC ACID. [Concomitant]
     Active Substance: FOLIC ACID
     Indication: PROPHYLAXIS
     Dosage: 1 MG, QD
     Route: 048
     Dates: start: 20160317
  25. MACPERAN [Concomitant]
     Active Substance: METOCLOPRAMIDE HYDROCHLORIDE
     Dosage: 10 MG, TID
     Route: 042
     Dates: start: 20160330, end: 20160401
  26. POTASSIUM CHLORIDE DAIHAN [Concomitant]
     Indication: PROPHYLAXIS
     Dosage: 0.5 AMPLE, BID
     Route: 042
     Dates: start: 20160324, end: 20160324
  27. HYDROXOCOBALAMIN [Concomitant]
     Active Substance: HYDROXOCOBALAMIN
     Dosage: 1 MG, ONCE
     Route: 030
     Dates: start: 20160324, end: 20160324

REACTIONS (14)
  - Leukocytosis [Not Recovered/Not Resolved]
  - Constipation [Recovered/Resolved]
  - Musculoskeletal pain [Recovered/Resolved]
  - Anaemia [Not Recovered/Not Resolved]
  - Nausea [Recovered/Resolved]
  - Hypokalaemia [Not Recovered/Not Resolved]
  - Hypoalbuminaemia [Not Recovered/Not Resolved]
  - Dizziness [Recovered/Resolved]
  - Hypophagia [Not Recovered/Not Resolved]
  - Insomnia [Recovered/Resolved]
  - Decubitus ulcer [Not Recovered/Not Resolved]
  - Oedema [Not Recovered/Not Resolved]
  - Pyrexia [Recovered/Resolved]
  - Vomiting [Recovered/Resolved]

NARRATIVE: CASE EVENT DATE: 20160324
